FAERS Safety Report 7232662-8 (Version None)
Quarter: 2011Q1

REPORT INFORMATION
  Report Type: 
  Country: None (occurrence: None)
  Receive Date: 20110119
  Receipt Date: 20110114
  Transmission Date: 20110831
  Serious: Yes (Death, Hospitalization)
  Sender: FDA-Public Use
  Company Number: JP-BAYER-201013665BYL

PATIENT
  Sex: Male

DRUGS (7)
  1. NEXAVAR [Suspect]
     Indication: HEPATIC NEOPLASM MALIGNANT
     Dosage: TAB
     Route: 048
     Dates: start: 20100706, end: 20100716
  2. URSO 250 [Concomitant]
     Dosage: 600 MG (DAILY DOSE), , ORAL
     Route: 048
  3. GLAKAY [Concomitant]
     Dosage: 45 MG (DAILY DOSE), , ORAL
     Route: 048
  4. NU-LOTAN [Concomitant]
     Dosage: 50 MG (DAILY DOSE), , ORAL
     Route: 048
     Dates: end: 20100721
  5. ZYLORIC [Concomitant]
     Dosage: 200 MG (DAILY DOSE), , ORAL
     Route: 048
     Dates: start: 20100518
  6. NORVASC [Concomitant]
     Dosage: 5 MG (DAILY DOSE), , ORAL
     Route: 048
     Dates: end: 20100721
  7. GLYCYRON [Concomitant]
     Dosage: 6 DF (DAILY DOSE), , ORAL
     Route: 048
     Dates: end: 20100721

REACTIONS (3)
  - DIABETES INSIPIDUS [None]
  - HYPERNATRAEMIA [None]
  - HEPATIC NEOPLASM MALIGNANT [None]
